FAERS Safety Report 23966983 (Version 3)
Quarter: 2024Q4

REPORT INFORMATION
  Report Type: Spontaneous
  Country: US (occurrence: US)
  Receive Date: 20240612
  Receipt Date: 20241029
  Transmission Date: 20250114
  Serious: No
  Sender: AMGEN
  Company Number: US-AMGEN-USASP2024115411

PATIENT
  Age: 66 Year
  Sex: Female

DRUGS (2)
  1. TEPEZZA [Suspect]
     Active Substance: TEPROTUMUMAB-TRBW
     Indication: Toxic goitre
     Dosage: 1450 MILLIGRAM, Q3WK (WEEK 0: PIV X1 DOSE FIRST INFUSION)
     Route: 042
     Dates: start: 20240524
  2. TEPEZZA [Suspect]
     Active Substance: TEPROTUMUMAB-TRBW
     Dosage: 19000 MILLIGRAM, Q3WK (WEEK 3, THIRD INFUSION) (PIV X 7 DOSES)
     Route: 042

REACTIONS (9)
  - Dizziness [Recovering/Resolving]
  - Nausea [Recovering/Resolving]
  - Eye pain [Recovering/Resolving]
  - Headache [Recovered/Resolved]
  - Blood pressure increased [Recovering/Resolving]
  - Vein rupture [Recovering/Resolving]
  - Contusion [Recovered/Resolved]
  - Asthenia [Not Recovered/Not Resolved]
  - Infection [Not Recovered/Not Resolved]

NARRATIVE: CASE EVENT DATE: 20240524
